FAERS Safety Report 24736312 (Version 2)
Quarter: 2024Q4

REPORT INFORMATION
  Report Type: Spontaneous
  Country: US (occurrence: US)
  Receive Date: 20241216
  Receipt Date: 20241223
  Transmission Date: 20250115
  Serious: Yes (Hospitalization)
  Sender: ALKEM
  Company Number: US-ALKEM LABORATORIES LIMITED-US-ALKEM-2024-25861

PATIENT
  Age: 34 Week
  Sex: Female

DRUGS (7)
  1. LACOSAMIDE [Suspect]
     Active Substance: LACOSAMIDE
     Indication: Status epilepticus
     Dosage: UNK
     Route: 065
  2. LACOSAMIDE [Suspect]
     Active Substance: LACOSAMIDE
     Dosage: 9 MILLIGRAM/KILOGRAM, QD (GRADUALLY TITRATED TO A MAXIMUM DOSE OVER 72 HOURS)
     Route: 065
  3. FOSPHENYTOIN [Concomitant]
     Active Substance: FOSPHENYTOIN
     Indication: Seizure
     Dosage: 20 MILLIGRAM/KILOGRAM, QD (X 2 DOSES ON DOL 1 AND 2)
     Route: 065
  4. MIDAZOLAM [Concomitant]
     Active Substance: MIDAZOLAM
     Indication: Seizure
     Dosage: (90 MICROGRAM PER KILOGRAM PER MINUTE)
     Route: 065
  5. PHENOBARBITAL [Concomitant]
     Active Substance: PHENOBARBITAL
     Indication: Seizure
     Dosage: 20 MILLIGRAM/KILOGRAM, QD
     Route: 042
  6. PHENOBARBITAL [Concomitant]
     Active Substance: PHENOBARBITAL
     Dosage: 5 MILLIGRAM/KILOGRAM, QD
     Route: 065
  7. VASOPRESSIN [Concomitant]
     Active Substance: VASOPRESSIN
     Indication: Drug therapy
     Dosage: (1.6 MILLIUNITS PER KILOGRAM PER MINUTE)
     Route: 065

REACTIONS (2)
  - Left ventricular dysfunction [Recovered/Resolved]
  - Hypertension [Recovered/Resolved]
